FAERS Safety Report 5446508-1 (Version None)
Quarter: 2007Q3

REPORT INFORMATION
  Report Type: 
  Country: None (occurrence: None)
  Receive Date: 20070907
  Receipt Date: 20070828
  Transmission Date: 20080115
  Serious: Yes (Hospitalization, Other)
  Sender: FDA-Public Use
  Company Number: DE-JNJFOC-20070703141

PATIENT
  Sex: Male
  Weight: 85 kg

DRUGS (4)
  1. INVEGA [Suspect]
     Indication: SCHIZOPHRENIA, RESIDUAL TYPE
     Route: 048
  2. TREVILOR [Concomitant]
     Indication: ASTHENIA
  3. LASIX [Concomitant]
  4. LORAZEPAM [Concomitant]

REACTIONS (1)
  - SUPRAVENTRICULAR TACHYCARDIA [None]
